FAERS Safety Report 16041935 (Version 1)
Quarter: 2019Q1

REPORT INFORMATION
  Report Type: Spontaneous
  Country: US (occurrence: US)
  Receive Date: 20190306
  Receipt Date: 20190306
  Transmission Date: 20190418
  Serious: Yes (Other)
  Sender: FDA-Public Use
  Company Number: US-AKORN PHARMACEUTICALS-2018AKN00686

PATIENT
  Age: 26 Year
  Sex: Female
  Weight: 93.9 kg

DRUGS (1)
  1. MYORISAN [Suspect]
     Active Substance: ISOTRETINOIN
     Indication: ACNE CYSTIC
     Dosage: 40 MG, EVERY 48 HOURS
     Route: 048
     Dates: start: 20180208, end: 20180422

REACTIONS (6)
  - Vision blurred [Unknown]
  - Muscular weakness [Unknown]
  - Off label use [Recovered/Resolved]
  - Pain [Unknown]
  - Intracranial pressure increased [Unknown]
  - Headache [Unknown]

NARRATIVE: CASE EVENT DATE: 20180208
